FAERS Safety Report 7971059-X (Version None)
Quarter: 2011Q4

REPORT INFORMATION
  Report Type: 
  Country: None (occurrence: None)
  Receive Date: 20111212
  Receipt Date: 20111212
  Transmission Date: 20120403
  Serious: Yes (Disabling)
  Sender: FDA-Public Use
  Company Number: None

PATIENT
  Age: 29 Year
  Sex: Male
  Weight: 124.28 kg

DRUGS (1)
  1. CHLORPROMAZINE [Suspect]
     Indication: SCHIZOAFFECTIVE DISORDER
     Dosage: 100 MG
     Route: 048
     Dates: start: 20110613, end: 20110613

REACTIONS (2)
  - PAINFUL ERECTION [None]
  - ERECTION INCREASED [None]
